FAERS Safety Report 10022282 (Version 1)
Quarter: 2014Q1

REPORT INFORMATION
  Report Type: Spontaneous
  Country: US (occurrence: None)
  Receive Date: 20140318
  Receipt Date: 20140318
  Transmission Date: 20141002
  Serious: Yes (Other)
  Sender: FDA-Public Use
  Company Number: None

PATIENT
  Age: 79 Year
  Sex: Female
  Weight: 67.13 kg

DRUGS (1)
  1. DULOXETINE HCL [Suspect]
     Indication: NEUROPATHY PERIPHERAL
     Route: 048
     Dates: start: 20140210, end: 20140226

REACTIONS (7)
  - Rash [None]
  - Pruritus [None]
  - Constipation [None]
  - Erythema [None]
  - Bradyphrenia [None]
  - Poor personal hygiene [None]
  - Mental disorder [None]
